FAERS Safety Report 16919457 (Version 1)
Quarter: 2019Q4

REPORT INFORMATION
  Report Type: Report from Study
  Country: KR (occurrence: KR)
  Receive Date: 20191015
  Receipt Date: 20191015
  Transmission Date: 20200122
  Serious: Yes (Death, Other)
  Sender: FDA-Public Use
  Company Number: KR-JNJFOC-20191002186

PATIENT

DRUGS (4)
  1. DARZALEX [Suspect]
     Active Substance: DARATUMUMAB
     Indication: PLASMA CELL MYELOMA
     Route: 065
  2. DIPHENHYDRAMINE. [Concomitant]
     Active Substance: DIPHENHYDRAMINE
     Indication: PROPHYLAXIS
  3. METHYLPREDNISOLONE. [Concomitant]
     Active Substance: METHYLPREDNISOLONE
     Indication: PROPHYLAXIS
  4. ACETAMINOPHEN. [Concomitant]
     Active Substance: ACETAMINOPHEN
     Indication: PROPHYLAXIS

REACTIONS (12)
  - Pseudomonal bacteraemia [Unknown]
  - Thrombocytopenia [Unknown]
  - Anaemia [Unknown]
  - Oral herpes [Unknown]
  - Atypical pneumonia [Unknown]
  - Febrile neutropenia [Unknown]
  - Corynebacterium bacteraemia [Fatal]
  - Pneumocystis jirovecii pneumonia [Unknown]
  - Neutropenia [Unknown]
  - Infusion related reaction [Unknown]
  - Bacteraemia [Fatal]
  - Fatigue [Unknown]
